FAERS Safety Report 17881941 (Version 1)
Quarter: 2020Q2

REPORT INFORMATION
  Report Type: Spontaneous
  Country: HR (occurrence: HR)
  Receive Date: 20200610
  Receipt Date: 20200610
  Transmission Date: 20200714
  Serious: Yes (Other)
  Sender: FDA-Public Use
  Company Number: HR-AMGEN-HRVSP2020088912

PATIENT
  Age: 56 Year
  Sex: Male

DRUGS (9)
  1. VECTIBIX [Suspect]
     Active Substance: PANITUMUMAB
     Dosage: UNK
     Route: 065
     Dates: start: 201910
  2. VECTIBIX [Suspect]
     Active Substance: PANITUMUMAB
     Indication: RECTAL CANCER
     Dosage: UNK
     Route: 065
     Dates: start: 201807, end: 201901
  3. FLUOROURACIL. [Concomitant]
     Active Substance: FLUOROURACIL
     Indication: RECTAL CANCER
     Dosage: UNK
     Dates: start: 201807, end: 201901
  4. FOLINIC ACID [Concomitant]
     Active Substance: LEUCOVORIN
     Dosage: UNK
     Dates: start: 201910
  5. IRINOTECAN [Concomitant]
     Active Substance: IRINOTECAN
     Dosage: UNK
     Dates: start: 201910
  6. CAPECITABINE. [Concomitant]
     Active Substance: CAPECITABINE
     Indication: RECTAL CANCER
     Dosage: UNK
     Dates: start: 201901, end: 201909
  7. FLUOROURACIL. [Concomitant]
     Active Substance: FLUOROURACIL
     Dosage: UNK
     Dates: start: 201910
  8. IRINOTECAN [Concomitant]
     Active Substance: IRINOTECAN
     Indication: RECTAL CANCER
     Dosage: UNK
     Dates: start: 201807, end: 201901
  9. FOLINIC ACID [Concomitant]
     Active Substance: LEUCOVORIN
     Indication: RECTAL CANCER
     Dosage: UNK
     Dates: start: 201807, end: 201901

REACTIONS (2)
  - Rectal cancer [Unknown]
  - Rash [Unknown]

NARRATIVE: CASE EVENT DATE: 2018
